FAERS Safety Report 19803470 (Version 1)
Quarter: 2021Q3

REPORT INFORMATION
  Report Type: Report from Study
  Country: CA (occurrence: CA)
  Receive Date: 20210908
  Receipt Date: 20210908
  Transmission Date: 20211014
  Serious: Yes (Other)
  Sender: FDA-Public Use
  Company Number: CA-ACCORD-237410

PATIENT
  Sex: Female

DRUGS (8)
  1. IMMUNOGLOBULIN (IMMUNOGLOBULIN NOS) [Suspect]
     Active Substance: IMMUNE GLOBULIN NOS
     Indication: PRODUCT USED FOR UNKNOWN INDICATION
     Route: 042
  2. COLECALCIFEROL [Concomitant]
     Active Substance: CHOLECALCIFEROL
  3. PANTOPRAZOLE [Concomitant]
     Active Substance: PANTOPRAZOLE
  4. PREDNISONE. [Concomitant]
     Active Substance: PREDNISONE
     Dosage: 1 EVERY 1 DAYS
  5. MYCOPHENOLIC ACID. [Suspect]
     Active Substance: MYCOPHENOLIC ACID
     Indication: DERMATOMYOSITIS
  6. RISEDRONIC ACID [Concomitant]
     Active Substance: RISEDRONIC ACID
     Indication: OSTEOPOROSIS
  7. TYLENOL [Concomitant]
     Active Substance: ACETAMINOPHEN
  8. IRON [Concomitant]
     Active Substance: IRON
     Indication: ANAEMIA

REACTIONS (6)
  - Pancytopenia [Unknown]
  - Dermatomyositis [Unknown]
  - Gastrointestinal disorder [Unknown]
  - Quality of life decreased [Unknown]
  - Off label use [Unknown]
  - Condition aggravated [Unknown]
